FAERS Safety Report 7843674-5 (Version None)
Quarter: 2011Q4

REPORT INFORMATION
  Report Type: 
  Country: None (occurrence: None)
  Receive Date: 20111025
  Receipt Date: 20111013
  Transmission Date: 20120403
  Serious: Yes (Death)
  Sender: FDA-Public Use
  Company Number: NL-ACTELION-A-CH2011-55503

PATIENT
  Sex: Female
  Weight: 50 kg

DRUGS (6)
  1. TRACLEER [Suspect]
     Dosage: 62.5 MG, BID
     Route: 048
     Dates: start: 20060718
  2. BUMETANIDE [Concomitant]
  3. SPIRONOLACTONE [Concomitant]
  4. OXYGEN [Concomitant]
  5. TRACLEER [Suspect]
     Indication: PULMONARY ARTERIAL HYPERTENSION
     Dosage: 125 MG, BID
     Route: 048
     Dates: end: 20110915
  6. ISOPTIN [Concomitant]

REACTIONS (1)
  - CARDIAC FAILURE [None]
